FAERS Safety Report 18481184 (Version 1)
Quarter: 2020Q4

REPORT INFORMATION
  Report Type: Report from Study
  Country: US (occurrence: US)
  Receive Date: 20201109
  Receipt Date: 20201109
  Transmission Date: 20210114
  Serious: Yes (Other)
  Sender: FDA-Public Use
  Company Number: US-BAUSCH-BL-2020-032111

PATIENT
  Age: 55 Year
  Sex: Female
  Weight: 141.65 kg

DRUGS (10)
  1. CELEBREX [Concomitant]
     Active Substance: CELECOXIB
     Indication: PRODUCT USED FOR UNKNOWN INDICATION
     Route: 048
     Dates: start: 20150709
  2. APRISO [Suspect]
     Active Substance: MESALAMINE
     Indication: PRODUCT USED FOR UNKNOWN INDICATION
     Dosage: TAKING DAILY, LAST FILL DATE 09/OCT/2020
     Route: 048
     Dates: start: 20180209
  3. GABAPENTIN. [Concomitant]
     Active Substance: GABAPENTIN
     Indication: PRODUCT USED FOR UNKNOWN INDICATION
     Route: 048
     Dates: start: 20160707
  4. PREDNISONE. [Concomitant]
     Active Substance: PREDNISONE
     Dosage: 3 DF PO QAM 2 WKS; 2 DF QAM 2 WKS, 1.5 DF QAM 2 WKS, 1 DF QAM 2 WKS, 0.5 DF QAM X2 WKS THEN STOP
     Route: 048
     Dates: start: 20200601
  5. ROBAXIN [Concomitant]
     Active Substance: METHOCARBAMOL
     Indication: PRODUCT USED FOR UNKNOWN INDICATION
     Dosage: ONCE AT NIGHT
     Route: 048
     Dates: start: 20180212
  6. STELARA [Concomitant]
     Active Substance: USTEKINUMAB
     Indication: PRODUCT USED FOR UNKNOWN INDICATION
     Dosage: LAST REFILL ON 14/SEP/2020?UNIT DOSE: SYRINGE
     Route: 058
     Dates: start: 20200601
  7. AZATHIOPRINE. [Concomitant]
     Active Substance: AZATHIOPRINE
     Indication: PRODUCT USED FOR UNKNOWN INDICATION
     Dosage: DAILY, AS DIRECTED FOR 30 DAYS, LAST REFILL DATE 28/SEP/2020
     Route: 048
     Dates: start: 20190501
  8. LISINOPRIL. [Concomitant]
     Active Substance: LISINOPRIL
     Indication: PRODUCT USED FOR UNKNOWN INDICATION
     Route: 048
     Dates: start: 20150709
  9. PREDNISONE. [Concomitant]
     Active Substance: PREDNISONE
     Indication: PRODUCT USED FOR UNKNOWN INDICATION
     Dosage: AS DIRECTED FOR 7 DAYS
     Route: 048
     Dates: start: 20200601
  10. ZOFRAN [Concomitant]
     Active Substance: ONDANSETRON HYDROCHLORIDE
     Indication: PRODUCT USED FOR UNKNOWN INDICATION
     Dosage: AS NEEDED, LAST REFILL ON 27/JUL/2020
     Route: 048
     Dates: start: 20191009

REACTIONS (5)
  - Crohn^s disease [Unknown]
  - Nausea [Recovering/Resolving]
  - Frequent bowel movements [Not Recovered/Not Resolved]
  - Nonalcoholic fatty liver disease [Unknown]
  - Hepatic enzyme increased [Unknown]
